FAERS Safety Report 4383800-6 (Version None)
Quarter: 2004Q2

REPORT INFORMATION
  Report Type: 
  Country: None (occurrence: None)
  Receive Date: 20040608
  Receipt Date: 20030918
  Transmission Date: 20050107
  Serious: Yes (Hospitalization, Other)
  Sender: FDA-Public Use
  Company Number: 200313399BCC

PATIENT

DRUGS (1)
  1. ALEVE [Suspect]
     Dosage: 880 MG, ONCE, ORAL
     Route: 048
     Dates: start: 20030917

REACTIONS (1)
  - MALAISE [None]
